FAERS Safety Report 17857928 (Version 4)
Quarter: 2021Q1

REPORT INFORMATION
  Report Type: Spontaneous
  Country: JP (occurrence: JP)
  Receive Date: 20200604
  Receipt Date: 20210121
  Transmission Date: 20210419
  Serious: Yes (Hospitalization)
  Sender: FDA-Public Use
  Company Number: JP-BEH-2020118131

PATIENT
  Age: 8 Month
  Sex: Male
  Weight: 9.8 kg

DRUGS (31)
  1. IDELVION [Suspect]
     Active Substance: COAGULATION FACTOR IX RECOMBINANT HUMAN
     Indication: FACTOR IX DEFICIENCY
     Dosage: 1000 INTERNATIONAL UNIT, QD
     Route: 042
     Dates: start: 20200109, end: 20200109
  2. IDELVION [Suspect]
     Active Substance: COAGULATION FACTOR IX RECOMBINANT HUMAN
     Indication: PROPHYLAXIS
     Dosage: 1000 INTERNATIONAL UNIT, QD
     Route: 042
     Dates: start: 20200112, end: 20200112
  3. IDELVION [Suspect]
     Active Substance: COAGULATION FACTOR IX RECOMBINANT HUMAN
     Indication: CONTUSION
     Dosage: 500 INTERNATIONAL UNIT FIFTH DAY AFTER LAST ADMINISTRATION
     Route: 042
     Dates: start: 20200503, end: 20200503
  4. IDELVION [Suspect]
     Active Substance: COAGULATION FACTOR IX RECOMBINANT HUMAN
     Dosage: 500 INTERNATIONAL UNIT, QD
     Route: 042
     Dates: start: 20200607, end: 20200607
  5. IDELVION [Suspect]
     Active Substance: COAGULATION FACTOR IX RECOMBINANT HUMAN
     Dosage: 1000 INTERNATIONAL UNIT, PRN
     Route: 042
     Dates: start: 20200109, end: 20200109
  6. KEPPRA [Concomitant]
     Active Substance: LEVETIRACETAM
     Dosage: UNK
     Dates: end: 20200114
  7. CEFAZOLIN NA [Concomitant]
     Active Substance: CEFAZOLIN SODIUM
     Indication: PROPHYLAXIS
     Dosage: UNK
     Dates: start: 20200513, end: 20200513
  8. VANCOMYCIN [Concomitant]
     Active Substance: VANCOMYCIN
     Indication: STAPHYLOCOCCAL INFECTION
     Dosage: UNK
     Dates: start: 20200518, end: 20200528
  9. IDELVION [Suspect]
     Active Substance: COAGULATION FACTOR IX RECOMBINANT HUMAN
     Indication: FACTOR IX DEFICIENCY
     Dosage: 500 INTERNATIONAL UNIT, QD
     Route: 042
     Dates: start: 20200522, end: 20200522
  10. IDELVION [Suspect]
     Active Substance: COAGULATION FACTOR IX RECOMBINANT HUMAN
     Indication: FACTOR IX DEFICIENCY
     Dosage: 500 INTERNATIONAL UNIT, QD
     Route: 042
     Dates: start: 20200522, end: 20200522
  11. IDELVION [Suspect]
     Active Substance: COAGULATION FACTOR IX RECOMBINANT HUMAN
     Indication: HAEMORRHAGE INTRACRANIAL
     Dosage: 500 INTERNATIONAL UNIT, QD
     Route: 042
     Dates: start: 20200529, end: 20200529
  12. IDELVION [Suspect]
     Active Substance: COAGULATION FACTOR IX RECOMBINANT HUMAN
     Indication: CONTUSION
     Dosage: 500 INTERNATIONAL UNIT FIFTH DAY AFTER LAST ADMINISTRATION
     Route: 042
     Dates: start: 20200503, end: 20200503
  13. FUROSEMIDE. [Concomitant]
     Active Substance: FUROSEMIDE
     Dosage: UNK
     Dates: end: 20200110
  14. IDELVION [Suspect]
     Active Substance: COAGULATION FACTOR IX RECOMBINANT HUMAN
     Indication: PROPHYLAXIS
     Dosage: 1000 INTERNATIONAL UNIT, QD
     Route: 042
     Dates: start: 20200112, end: 20200112
  15. IDELVION [Suspect]
     Active Substance: COAGULATION FACTOR IX RECOMBINANT HUMAN
     Indication: HAEMORRHAGE
     Dosage: 500 INTERNATIONAL UNIT, QW
     Route: 042
     Dates: start: 20200121, end: 20200428
  16. IDELVION [Suspect]
     Active Substance: COAGULATION FACTOR IX RECOMBINANT HUMAN
     Indication: CENTRAL VENOUS CATHETER REMOVAL
     Dosage: 500 INTERNATIONAL UNIT, QD
     Route: 042
     Dates: start: 20200518, end: 20200518
  17. IDELVION [Suspect]
     Active Substance: COAGULATION FACTOR IX RECOMBINANT HUMAN
     Indication: HAEMORRHAGE INTRACRANIAL
     Dosage: 500 INTERNATIONAL UNIT, QD
     Route: 042
     Dates: start: 20200529, end: 20200529
  18. IDELVION [Suspect]
     Active Substance: COAGULATION FACTOR IX RECOMBINANT HUMAN
     Dosage: 500 INTERNATIONAL UNIT, QD
     Route: 042
     Dates: start: 20200607, end: 20200607
  19. FOSTOIN [Concomitant]
     Active Substance: FOSPHENYTOIN SODIUM
     Dosage: UNK
     Dates: start: 20200110, end: 20200113
  20. IDELVION [Suspect]
     Active Substance: COAGULATION FACTOR IX RECOMBINANT HUMAN
     Dosage: 1000 INTERNATIONAL UNIT, PRN
     Route: 042
     Dates: start: 20200109, end: 20200109
  21. E KEPPRA [Concomitant]
     Active Substance: LEVETIRACETAM
     Dosage: UNK
     Route: 048
     Dates: start: 20200114
  22. CEFTRIAXONE. [Concomitant]
     Active Substance: CEFTRIAXONE
     Indication: STAPHYLOCOCCAL INFECTION
     Dosage: UNK
     Dates: start: 20200518, end: 20200520
  23. IDELVION [Suspect]
     Active Substance: COAGULATION FACTOR IX RECOMBINANT HUMAN
     Indication: FACTOR IX DEFICIENCY
     Dosage: 1000 INTERNATIONAL UNIT, QD
     Route: 042
     Dates: start: 20200109, end: 20200109
  24. IDELVION [Suspect]
     Active Substance: COAGULATION FACTOR IX RECOMBINANT HUMAN
     Indication: HAEMORRHAGE
     Dosage: 500 INTERNATIONAL UNIT, QW
     Route: 042
     Dates: start: 20200121, end: 20200428
  25. IDELVION [Suspect]
     Active Substance: COAGULATION FACTOR IX RECOMBINANT HUMAN
     Dosage: 500 INTERNATIONAL UNIT, QW
     Route: 042
     Dates: start: 20200616, end: 20200707
  26. IDELVION [Suspect]
     Active Substance: COAGULATION FACTOR IX RECOMBINANT HUMAN
     Dosage: 500 INTERNATIONAL UNIT, QW
     Route: 042
     Dates: start: 20200616, end: 20200707
  27. IDELVION [Suspect]
     Active Substance: COAGULATION FACTOR IX RECOMBINANT HUMAN
     Indication: CENTRAL VENOUS CATHETERISATION
     Dosage: 500 INTERNATIONAL UNIT, QD
     Route: 042
     Dates: start: 20200512, end: 20200513
  28. IDELVION [Suspect]
     Active Substance: COAGULATION FACTOR IX RECOMBINANT HUMAN
     Indication: CENTRAL VENOUS CATHETERISATION
     Dosage: 500 INTERNATIONAL UNIT, QD
     Route: 042
     Dates: start: 20200512, end: 20200513
  29. IDELVION [Suspect]
     Active Substance: COAGULATION FACTOR IX RECOMBINANT HUMAN
     Indication: CENTRAL VENOUS CATHETER REMOVAL
     Dosage: 500 INTERNATIONAL UNIT, QD
     Route: 042
     Dates: start: 20200518, end: 20200518
  30. CEFTRIAXONE. [Concomitant]
     Active Substance: CEFTRIAXONE
     Indication: STAPHYLOCOCCAL BACTERAEMIA
  31. VANCOMYCIN [Concomitant]
     Active Substance: VANCOMYCIN
     Indication: STAPHYLOCOCCAL BACTERAEMIA

REACTIONS (4)
  - Staphylococcal infection [Recovering/Resolving]
  - Staphylococcal bacteraemia [Recovering/Resolving]
  - Device related infection [Recovering/Resolving]
  - Jugular vein thrombosis [Recovered/Resolved]

NARRATIVE: CASE EVENT DATE: 20200518
